FAERS Safety Report 5443106-0 (Version None)
Quarter: 2007Q3

REPORT INFORMATION
  Report Type: 
  Country: None (occurrence: None)
  Receive Date: 20070905
  Receipt Date: 20070827
  Transmission Date: 20080115
  Serious: Yes (Other)
  Sender: FDA-Public Use
  Company Number: CA-NOVOPROD-266991

PATIENT
  Age: 65 Year
  Sex: Female

DRUGS (8)
  1. LEVEMIR [Suspect]
     Indication: DIABETES MELLITUS
     Dosage: 30 IU, UNK
  2. GLUCOPHAGE [Concomitant]
     Dosage: 1700 MG, UNK
  3. DIABETA                            /00145301/ [Concomitant]
     Dosage: 5 MG, UNK
  4. SYNTHROID [Concomitant]
     Dosage: .125 MG, UNK
  5. CARDIZEM CD [Concomitant]
     Dosage: 240 MG, UNK
  6. INHIBACE                           /00498401/ [Concomitant]
     Dosage: 10 MG, UNK
  7. PAXIL [Concomitant]
     Dosage: 20 MG, UNK
  8. ASAPHEN [Concomitant]
     Dosage: 80 MG, UNK

REACTIONS (1)
  - PHLEBITIS SUPERFICIAL [None]
